FAERS Safety Report 12990467 (Version 3)
Quarter: 2017Q1

REPORT INFORMATION
  Report Type: Spontaneous
  Country: JP (occurrence: JP)
  Receive Date: 20161201
  Receipt Date: 20170111
  Transmission Date: 20170428
  Serious: Yes (Hospitalization)
  Sender: FDA-Public Use
  Company Number: JP-ASTELLAS-2016JP020467AA

PATIENT
  Age: 80 Year
  Sex: Male

DRUGS (18)
  1. TACROLIMUS. [Suspect]
     Active Substance: TACROLIMUS
     Dosage: 1 DF, ONCE DAILY AFTER DINNER
     Route: 048
     Dates: start: 20161112
  2. BREDININ [Concomitant]
     Active Substance: MIZORIBINE
     Indication: RHEUMATOID ARTHRITIS
     Dosage: 6 TABLETS TWICE DAILY AFTER BREAKFAST AND DINNER ON SATURDAY, 3 TABLETS ONCE DAILY AFTER BREAKFAST O
     Route: 048
     Dates: end: 201610
  3. METHOTREXATE. [Concomitant]
     Active Substance: METHOTREXATE
     Indication: RHEUMATOID ARTHRITIS
     Dosage: 2 TABLETS TWICE DAILY AFTER BREAKFAST AND DINNER ON SATURDAY, 0.5 TABLET ONCE DAILY AFTER BREAKFAST
     Route: 048
     Dates: start: 201103, end: 201610
  4. METHOTREXATE. [Concomitant]
     Active Substance: METHOTREXATE
     Dosage: 2 TABLETS TWICE DAILY AFTER BREAKFAST AND DINNER ON SATURDAY, 0.5 TABLET ONCE DAILY AFTER BREAKFAST
     Route: 048
     Dates: start: 20161112
  5. CELECOX [Concomitant]
     Active Substance: CELECOXIB
     Indication: RHEUMATOID ARTHRITIS
     Route: 065
  6. BONOTEO [Suspect]
     Active Substance: MINODRONIC ACID
     Indication: OSTEOPOROSIS
     Dosage: 50 MG, EVERY 4 WEEKS ON AWAKENING
     Route: 048
     Dates: start: 20130124
  7. TACROLIMUS. [Suspect]
     Active Substance: TACROLIMUS
     Indication: RHEUMATOID ARTHRITIS
     Dosage: 1 DF, ONCE DAILY AFTER DINNER
     Route: 048
     Dates: start: 20150825, end: 201610
  8. IRSOGLADINE MALEATE [Concomitant]
     Active Substance: IRSOGLADINE MALEATE
     Indication: PROPHYLAXIS
     Dosage: 1 DF, ONCE DAILY AFTER BREAKFAST
     Route: 065
  9. ACTONEL [Concomitant]
     Active Substance: RISEDRONATE SODIUM
     Indication: OSTEOPOROSIS
     Route: 065
     Dates: start: 20110512, end: 20130124
  10. LOXONIN [Concomitant]
     Active Substance: LOXOPROFEN SODIUM
     Indication: RHEUMATOID ARTHRITIS
     Dosage: 2 SHEETS DAILY ON PAINFUL SITE
     Route: 065
  11. MEROPENEM. [Concomitant]
     Active Substance: MEROPENEM
     Indication: LUNG INFECTION
     Dosage: 0.5 G, THRICE DAILY
     Route: 065
     Dates: start: 201610
  12. PREDNISOLONE. [Concomitant]
     Active Substance: PREDNISOLONE
     Dosage: 4 MG, ONCE DAILY AFTER BREAKFAST
     Route: 048
  13. ARASENA A [Concomitant]
     Active Substance: VIDARABINE
     Indication: PRODUCT USED FOR UNKNOWN INDICATION
     Dosage: 5 G, 3-4 TIMES DAILY
     Route: 061
     Dates: start: 20161018
  14. PREDNISOLONE. [Concomitant]
     Active Substance: PREDNISOLONE
     Indication: RHEUMATOID ARTHRITIS
     Route: 048
     Dates: start: 201103
  15. BREDININ [Concomitant]
     Active Substance: MIZORIBINE
     Dosage: 6 TABLETS TWICE DAILY AFTER BREAKFAST AND DINNER ON SATURDAY, 3 TABLETS ONCE DAILY AFTER BREAKFAST O
     Route: 048
     Dates: start: 20161112
  16. ARBEKACIN SULFATE [Concomitant]
     Active Substance: ARBEKACIN SULFATE
     Indication: LUNG INFECTION
     Route: 065
     Dates: start: 201610
  17. FOLIAMIN [Concomitant]
     Active Substance: FOLIC ACID
     Indication: PROPHYLAXIS
     Dosage: ONCE DAILY AFTER BREAKFAST ON TUESDAY
     Route: 065
  18. IRSOGLADINE MALEATE [Concomitant]
     Active Substance: IRSOGLADINE MALEATE
     Indication: PROPHYLAXIS

REACTIONS (4)
  - Renal impairment [Not Recovered/Not Resolved]
  - Osteomyelitis [Unknown]
  - Osteonecrosis of jaw [Unknown]
  - Lung infection [Recovered/Resolved]

NARRATIVE: CASE EVENT DATE: 201610
